FAERS Safety Report 8533476 (Version 5)
Quarter: 2013Q2

REPORT INFORMATION
  Report Type: Spontaneous
  Country: US (occurrence: None)
  Receive Date: 20120417
  Receipt Date: 20130517
  Transmission Date: 20140414
  Serious: Yes (Disabling, Other)
  Sender: FDA-Public Use
  Company Number: ACO_30033_2012

PATIENT
  Age: 65 Year
  Sex: Female
  Weight: 65.8 kg

DRUGS (15)
  1. AMPYRA (DALFAMPRIDINE) TABLET, 10 MG [Suspect]
     Indication: GAIT DISTURBANCE
     Route: 048
     Dates: end: 201112
  2. AVONEX [Concomitant]
  3. CYMBALTA (DULOXETINE HYDROCHLORIDE) [Concomitant]
  4. OMEPRAZOLE (OMEPRAZOLE) [Concomitant]
  5. DETROL LA (TOLTERODINE L TARTRATE) [Concomitant]
  6. RITALIN (METHYLPHENIDATE HYDROCHLORIDE) [Concomitant]
  7. METOPROLOL (METOPROLOL TARTRATE) [Concomitant]
  8. SIMVASTATIN (SIMVASTATIN) [Concomitant]
  9. IBUPROFEN (IBUPROFEN) [Concomitant]
  10. VALIUM (DIAZEPAM) [Concomitant]
  11. VITAMIN B12 (CYANOCOBALAMIN) [Concomitant]
  12. VITAMIN D3 (COLECALCIFEROL) [Concomitant]
  13. FISH OIL (FISH OIL) [Concomitant]
  14. ALL OTHER THERAPEUTIC PRODUCTS [Concomitant]
  15. PROBIOTIC (BIFIDOBACTERIUM INFANTIS, LACTOBACILLUS ACIDOPHILUS) [Concomitant]

REACTIONS (8)
  - Abasia [None]
  - Disorientation [None]
  - Mental impairment [None]
  - Memory impairment [None]
  - Drug withdrawal syndrome [None]
  - Pain [None]
  - Panic disorder [None]
  - Asthenia [None]
